FAERS Safety Report 23566900 (Version 4)
Quarter: 2024Q2

REPORT INFORMATION
  Report Type: Report from Study
  Country: KR (occurrence: KR)
  Receive Date: 20240226
  Receipt Date: 20240620
  Transmission Date: 20240715
  Serious: Yes (Life-Threatening, Hospitalization)
  Sender: FDA-Public Use
  Company Number: KR-MYLANLABS-2024M1018179

PATIENT
  Age: 49 Year
  Sex: Male
  Weight: 99.5 kg

DRUGS (10)
  1. LIPITOR [Suspect]
     Active Substance: ATORVASTATIN CALCIUM
     Indication: Dyslipidaemia
     Dosage: 1 DOSAGE FORM, QD
     Route: 048
     Dates: start: 20240109, end: 20240111
  2. LIPITOR [Suspect]
     Active Substance: ATORVASTATIN CALCIUM
     Dosage: 40 MILLIGRAM, QD (ONCE DAILY)
     Route: 065
     Dates: start: 20240111
  3. Hanmi aspirin [Concomitant]
     Indication: Dyslipidaemia
     Dosage: 1 DOSAGE FORM, QD
     Route: 048
     Dates: start: 20240109
  4. BRILINTA [Concomitant]
     Active Substance: TICAGRELOR
     Indication: Dyslipidaemia
     Dosage: 1 DOSAGE FORM, BID
     Route: 048
     Dates: start: 20240109, end: 20240221
  5. DIABEX [Concomitant]
     Active Substance: METFORMIN HYDROCHLORIDE
     Indication: Diabetes mellitus
     Dosage: 1 DOSAGE FORM, QD
     Route: 048
     Dates: start: 20240109, end: 20240221
  6. JARDIANCE [Concomitant]
     Active Substance: EMPAGLIFLOZIN
     Indication: Diabetes mellitus
     Dosage: 1 DOSAGE FORM, QD
     Route: 048
     Dates: start: 20240109, end: 20240221
  7. DIOVAN [Concomitant]
     Active Substance: VALSARTAN
     Indication: Prophylaxis
     Dosage: 0.5 DOSAGE FORM, QD
     Route: 048
     Dates: start: 20240110, end: 20240221
  8. CARVEDILOL [Concomitant]
     Active Substance: CARVEDILOL
     Indication: Prophylaxis
     Dosage: 1 DOSAGE FORM, BID
     Route: 048
     Dates: start: 20240110
  9. Myungmoon nitroglycerin [Concomitant]
     Indication: Dyslipidaemia
     Dosage: 1 DOSAGE FORM, QD(PRN)
     Route: 048
     Dates: start: 20240112
  10. NEBIVOLOL HYDROCHLORIDE [Concomitant]
     Active Substance: NEBIVOLOL HYDROCHLORIDE
     Indication: Prophylaxis
     Dosage: 0.5 DOSAGE FORM, QD
     Route: 048
     Dates: start: 20240222

REACTIONS (1)
  - Gastric cancer [Recovering/Resolving]

NARRATIVE: CASE EVENT DATE: 20240121
